FAERS Safety Report 8444056-8 (Version None)
Quarter: 2012Q2

REPORT INFORMATION
  Report Type: 
  Country: None (occurrence: None)
  Receive Date: 20120618
  Receipt Date: 20120607
  Transmission Date: 20120825
  Serious: Yes (Hospitalization, Other)
  Sender: FDA-Public Use
  Company Number: PHHY2012AU041104

PATIENT
  Sex: Male

DRUGS (2)
  1. CLOZARIL [Suspect]
     Dosage: 150 MG, UNK
     Route: 048
     Dates: start: 20090122, end: 20120524
  2. ESCITALOPRAM [Concomitant]
     Dosage: 60 MG, MANE
     Route: 048
     Dates: start: 20120512

REACTIONS (5)
  - HYPOPHAGIA [None]
  - OBSESSIVE-COMPULSIVE DISORDER [None]
  - MENTAL IMPAIRMENT [None]
  - DEHYDRATION [None]
  - DRUG INEFFECTIVE [None]
